FAERS Safety Report 5258646-7 (Version None)
Quarter: 2007Q1

REPORT INFORMATION
  Report Type: 
  Country: None (occurrence: None)
  Receive Date: 20070306
  Receipt Date: 20070306
  Transmission Date: 20070707
  Serious: No
  Sender: FDA-Public Use
  Company Number: None

PATIENT
  Sex: Female

DRUGS (1)
  1. CHLORHEXIDINE GLUCONATE [Suspect]
     Indication: PERIODONTITIS
     Dosage: 1 OZ ONE INTRAORAL
     Route: 048
     Dates: start: 20061122

REACTIONS (3)
  - PAIN [None]
  - POST PROCEDURAL COMPLICATION [None]
  - SOFT TISSUE NECROSIS [None]
